FAERS Safety Report 8494979-9 (Version None)
Quarter: 2012Q3

REPORT INFORMATION
  Report Type: 
  Country: None (occurrence: None)
  Receive Date: 20120702
  Receipt Date: 20120702
  Transmission Date: 20120928
  Serious: Yes (Hospitalization)
  Sender: FDA-Public Use
  Company Number: None

PATIENT
  Sex: Male
  Weight: 63 kg

DRUGS (2)
  1. CARBOPLATIN [Suspect]
     Dosage: 1011 MG
     Dates: end: 20110607
  2. TAXOL [Suspect]
     Dosage: 468 MG
     Dates: end: 20110607

REACTIONS (3)
  - FEBRILE NEUTROPENIA [None]
  - HYPOTENSION [None]
  - CARDIAC FIBRILLATION [None]
